FAERS Safety Report 14347393 (Version 1)
Quarter: 2018Q1

REPORT INFORMATION
  Report Type: Spontaneous
  Country: US (occurrence: US)
  Receive Date: 20180102
  Receipt Date: 20180102
  Transmission Date: 20180509
  Serious: Yes (Other)
  Sender: FDA-Public Use
  Company Number: None

PATIENT
  Age: 52 Year
  Sex: Female
  Weight: 55.8 kg

DRUGS (2)
  1. BUPRENORPHINE-NALOX [Concomitant]
  2. SUBOXONE [Suspect]
     Active Substance: BUPRENORPHINE HYDROCHLORIDE\NALOXONE HYDROCHLORIDE
     Route: 060

REACTIONS (4)
  - Apparent death [None]
  - Adverse reaction [None]
  - Product dosage form issue [None]
  - Product substitution issue [None]

NARRATIVE: CASE EVENT DATE: 20140202
